FAERS Safety Report 14033112 (Version 1)
Quarter: 2017Q4

REPORT INFORMATION
  Report Type: Spontaneous
  Country: FR (occurrence: FR)
  Receive Date: 20171002
  Receipt Date: 20171002
  Transmission Date: 20180321
  Serious: Yes (Hospitalization)
  Sender: FDA-Public Use
  Company Number: FR-BAYER-2017-186503

PATIENT
  Age: 73 Year
  Sex: Female

DRUGS (10)
  1. CIFLOX 750 MG [Suspect]
     Active Substance: CIPROFLOXACIN
     Indication: PSEUDOMONAS INFECTION
     Dosage: 750 MG, QD
     Dates: start: 20170905
  2. NOVONORM [Concomitant]
     Active Substance: REPAGLINIDE
     Dosage: UNK
  3. FORTUM [Concomitant]
     Active Substance: CEFTAZIDIME
     Indication: PSEUDOMONAS INFECTION
     Dosage: 2 G, QID
     Dates: start: 20170823, end: 20170828
  4. COUMADIN [Concomitant]
     Active Substance: WARFARIN SODIUM
     Dosage: UNK
  5. LASILIX [Concomitant]
     Active Substance: FUROSEMIDE
     Dosage: UNK
  6. CEFEPIME [Suspect]
     Active Substance: CEFEPIME HYDROCHLORIDE
     Indication: PSEUDOMONAS INFECTION
     Dosage: 2 G, BID
     Route: 042
     Dates: start: 20170829
  7. CEFEPIME [Suspect]
     Active Substance: CEFEPIME HYDROCHLORIDE
     Indication: PSEUDOMONAS INFECTION
     Dosage: 2 G, QD
     Dates: start: 20170905
  8. LANTUS [Concomitant]
     Active Substance: INSULIN GLARGINE
     Dosage: UNK
  9. CIFLOX 750 MG [Suspect]
     Active Substance: CIPROFLOXACIN
     Indication: PSEUDOMONAS INFECTION
     Dosage: 750 MG, BID
     Route: 042
     Dates: start: 20170823
  10. INIPOMP [Concomitant]
     Active Substance: PANTOPRAZOLE SODIUM
     Dosage: UNK

REACTIONS (4)
  - Confusional state [Recovered/Resolved]
  - Hallucination [Recovered/Resolved]
  - Accidental overdose [Recovered/Resolved]
  - Drug prescribing error [Recovered/Resolved]

NARRATIVE: CASE EVENT DATE: 20170904
